FAERS Safety Report 14449266 (Version 2)
Quarter: 2018Q1

REPORT INFORMATION
  Report Type: Report from Study
  Country: None (occurrence: US)
  Receive Date: 20180127
  Receipt Date: 20180326
  Transmission Date: 20180509
  Serious: Yes (Other)
  Sender: FDA-Public Use
  Company Number: US-ABBVIE-17K-163-2206128-00

PATIENT
  Age: 54 Year
  Sex: Female
  Weight: 76.73 kg

DRUGS (3)
  1. HUMIRA [Suspect]
     Active Substance: ADALIMUMAB
     Route: 058
     Dates: start: 201708, end: 2017
  2. SYNTHROID [Suspect]
     Active Substance: LEVOTHYROXINE SODIUM
     Indication: HYPOTHYROIDISM
     Route: 048
     Dates: start: 1989
  3. HUMIRA [Suspect]
     Active Substance: ADALIMUMAB
     Indication: RHEUMATOID ARTHRITIS
     Route: 058
     Dates: start: 201706, end: 2017

REACTIONS (14)
  - Pain in extremity [Not Recovered/Not Resolved]
  - Gait disturbance [Unknown]
  - Peroneal nerve palsy [Unknown]
  - Fibromyalgia [Not Recovered/Not Resolved]
  - Intervertebral disc protrusion [Not Recovered/Not Resolved]
  - Nodule [Recovered/Resolved]
  - Peripheral swelling [Recovering/Resolving]
  - Musculoskeletal discomfort [Unknown]
  - Chronic fatigue syndrome [Not Recovered/Not Resolved]
  - Injection site pain [Recovering/Resolving]
  - Intervertebral disc degeneration [Unknown]
  - Arthralgia [Recovering/Resolving]
  - Foot deformity [Not Recovered/Not Resolved]
  - Back pain [Not Recovered/Not Resolved]

NARRATIVE: CASE EVENT DATE: 2003
